FAERS Safety Report 5239300-4 (Version None)
Quarter: 2007Q1

REPORT INFORMATION
  Report Type: 
  Country: None (occurrence: None)
  Receive Date: 20070216
  Receipt Date: 20070205
  Transmission Date: 20070707
  Serious: Yes (Hospitalization)
  Sender: FDA-Public Use
  Company Number: 2007SE00520

PATIENT
  Age: 70 Year
  Sex: Female

DRUGS (14)
  1. SEROQUEL [Suspect]
     Indication: BIPOLAR I DISORDER
     Route: 048
     Dates: end: 20070105
  2. SEROQUEL [Suspect]
     Route: 048
     Dates: start: 20070105, end: 20070113
  3. LITHIUM CARBONATE [Suspect]
     Indication: BIPOLAR I DISORDER
     Route: 065
     Dates: end: 20070113
  4. LITHIUM CARBONATE [Suspect]
     Route: 065
     Dates: start: 20070115, end: 20070116
  5. NITROGLYCERINA BAND AID [Suspect]
     Indication: ISCHAEMIC CARDIOMYOPATHY
     Route: 065
  6. CABASER [Suspect]
     Route: 048
     Dates: end: 20070113
  7. CLOZAPINE [Suspect]
     Route: 048
     Dates: end: 20070113
  8. CONGESCOR [Suspect]
     Indication: ISCHAEMIC CARDIOMYOPATHY
     Route: 065
     Dates: end: 20070113
  9. CARDIRENE [Suspect]
     Indication: ISCHAEMIC CARDIOMYOPATHY
     Route: 048
  10. PRELECTAL [Suspect]
     Indication: ISCHAEMIC CARDIOMYOPATHY
     Route: 048
  11. TIROSINT [Suspect]
     Indication: THYROID DISORDER
     Route: 048
  12. REMERON [Suspect]
     Indication: BIPOLAR I DISORDER
     Route: 065
     Dates: start: 20070105, end: 20070113
  13. CIMBALTA [Suspect]
     Indication: BIPOLAR I DISORDER
     Route: 065
     Dates: start: 20070105, end: 20070113
  14. DEPAKOTE [Concomitant]

REACTIONS (7)
  - COMA [None]
  - ELECTROCARDIOGRAM QT PROLONGED [None]
  - EXTRASYSTOLES [None]
  - HYPOTENSION [None]
  - NEUROLEPTIC MALIGNANT SYNDROME [None]
  - NUCHAL RIGIDITY [None]
  - PSYCHOTIC DISORDER [None]
